FAERS Safety Report 9513984 (Version 1)
Quarter: 2013Q3

REPORT INFORMATION
  Report Type: Spontaneous
  Country: FR (occurrence: FR)
  Receive Date: 20130910
  Receipt Date: 20130910
  Transmission Date: 20140515
  Serious: Yes (Life-Threatening, Other)
  Sender: FDA-Public Use
  Company Number: FR-ELI_LILLY_AND_COMPANY-FR201308009846

PATIENT
  Sex: Male

DRUGS (6)
  1. PROZAC [Suspect]
     Dosage: 20 MG, QD
     Route: 048
  2. HEPARIN [Suspect]
     Indication: CEREBROVASCULAR ACCIDENT
     Dosage: 30000 IU, OTHER
     Route: 042
  3. AMOXICILLIN CLAVULANIC ACID [Suspect]
     Indication: LUNG DISORDER
     Dosage: 3 G, QD
     Route: 042
  4. INEXIUM /01479302/ [Suspect]
     Dosage: 40 MG, QD
     Route: 048
  5. INEXIUM /01479302/ [Suspect]
     Dosage: UNK
  6. TAHOR [Concomitant]
     Dosage: UNK

REACTIONS (6)
  - Anaemia [Recovered/Resolved]
  - Melaena [Recovered/Resolved]
  - Hypotension [Recovered/Resolved]
  - Renal impairment [Unknown]
  - Hepatocellular injury [Unknown]
  - Hypokalaemia [Unknown]
